FAERS Safety Report 13887392 (Version 1)
Quarter: 2017Q3

REPORT INFORMATION
  Report Type: Spontaneous
  Country: US (occurrence: US)
  Receive Date: 20170821
  Receipt Date: 20170821
  Transmission Date: 20171127
  Serious: No
  Sender: FDA-Public Use
  Company Number: US-ROCHE-803511

PATIENT
  Sex: Female
  Weight: 63.5 kg

DRUGS (1)
  1. ACTEMRA [Suspect]
     Active Substance: TOCILIZUMAB
     Indication: RHEUMATOID ARTHRITIS
     Route: 042

REACTIONS (5)
  - Diarrhoea [Unknown]
  - Gastrointestinal pain [Unknown]
  - Muscle spasms [Unknown]
  - Skin lesion [Recovering/Resolving]
  - Faeces discoloured [Unknown]
